FAERS Safety Report 4366633-6 (Version None)
Quarter: 2004Q2

REPORT INFORMATION
  Report Type: 
  Country: None (occurrence: None)
  Receive Date: 20040527
  Receipt Date: 20040526
  Transmission Date: 20050107
  Serious: Yes (Life-Threatening, Hospitalization)
  Sender: FDA-Public Use
  Company Number: ES-BRISTOL-MYERS SQUIBB COMPANY-12596615

PATIENT
  Age: 38 Year
  Sex: Male

DRUGS (8)
  1. SUSTIVA [Suspect]
     Indication: HIV INFECTION
     Dosage: 3 TABLETS TAKEN AS A SINGLE DAILY DOSE
     Route: 048
     Dates: start: 20040216, end: 20040308
  2. VIDEX [Suspect]
     Indication: HIV INFECTION
     Dosage: INTERRUPTED FROM 08-MAR-2004 TO 30-MAR-2004
     Dates: start: 20040216
  3. VIREAD [Suspect]
     Indication: HIV INFECTION
     Dosage: INTERRUPTED FROM 08-MAR-2004 TO 30-MAR-2004
     Dates: start: 20040216
  4. PYRAZINAMIDE [Suspect]
  5. SEPTRA [Concomitant]
  6. LOITIN [Concomitant]
     Dosage: LOITIN 200
  7. ISONIAZID [Concomitant]
  8. RIFAMPICIN [Concomitant]

REACTIONS (5)
  - CHOLESTASIS [None]
  - COMA [None]
  - HEPATOTOXICITY [None]
  - HYPERURICAEMIA [None]
  - RENAL FAILURE ACUTE [None]
